FAERS Safety Report 7553389-9 (Version None)
Quarter: 2011Q2

REPORT INFORMATION
  Report Type: 
  Country: None (occurrence: None)
  Receive Date: 20110617
  Receipt Date: 20110504
  Transmission Date: 20111010
  Serious: No
  Sender: FDA-Public Use
  Company Number: A0926808A

PATIENT
  Age: 53 Year
  Sex: Female

DRUGS (1)
  1. PROMACTA [Suspect]
     Dosage: 75MG PER DAY
     Route: 048

REACTIONS (3)
  - NAUSEA [None]
  - MYALGIA [None]
  - DIARRHOEA [None]
